FAERS Safety Report 11633402 (Version 1)
Quarter: 2015Q4

REPORT INFORMATION
  Report Type: Spontaneous
  Country: DE (occurrence: DE)
  Receive Date: 20151015
  Receipt Date: 20151015
  Transmission Date: 20160304
  Serious: Yes (Other)
  Sender: FDA-Public Use
  Company Number: PHHY2015DE123839

PATIENT
  Age: 14 Year
  Sex: Male

DRUGS (9)
  1. CYCLOPHOSPHAMIDE. [Suspect]
     Active Substance: CYCLOPHOSPHAMIDE
     Dosage: 170 MG/M2,  D1 +8 (30?60 MIN INFUSION)
     Route: 041
  2. BRENTUXIMAB VEDOTIN [Concomitant]
     Active Substance: BRENTUXIMAB VEDOTIN
     Indication: HODGKIN^S DISEASE
     Dosage: 1.8 MG/KG,  EVERY 3 WEEK
     Route: 065
  3. CYCLOPHOSPHAMIDE. [Suspect]
     Active Substance: CYCLOPHOSPHAMIDE
     Dosage: 333 MG/M2, D1 +8 (30?60 MIN INFUSION)
     Route: 041
  4. VINCRISTINE [Suspect]
     Active Substance: VINCRISTINE
     Dosage: 0.7 MG/M2, (MAX. 1 MG) D1+8 (30 MIN INFUSION)
     Route: 041
  5. PREDNISONE. [Suspect]
     Active Substance: PREDNISONE
     Indication: HODGKIN^S DISEASE
     Dosage: 40 MG/M2, Q3 D1?15
     Route: 048
  6. RITUXIMAB [Suspect]
     Active Substance: RITUXIMAB
     Indication: HODGKIN^S DISEASE
     Dosage: 375 MG/M2, D2 (INFUSION OVER 10 HR)
     Route: 041
  7. CYCLOPHOSPHAMIDE. [Suspect]
     Active Substance: CYCLOPHOSPHAMIDE
     Indication: HODGKIN^S DISEASE
     Dosage: 500 MG/M2 D1+8 (30?60 MIN INFUSION)
     Route: 041
  8. VINCRISTINE [Suspect]
     Active Substance: VINCRISTINE
     Indication: HODGKIN^S DISEASE
     Dosage: 1.5 MG/M2, (MAX. 2 MG) D1+8 (30 MIN INFUSION)
     Route: 041
  9. PROCARBAZINE [Suspect]
     Active Substance: PROCARBAZINE
     Indication: HODGKIN^S DISEASE
     Dosage: 100 UNK, Q2-3 D1?15
     Route: 048

REACTIONS (7)
  - Coordination abnormal [Unknown]
  - Platelet count decreased [Unknown]
  - Weight decreased [Unknown]
  - Anaemia [Recovered/Resolved]
  - Dysphemia [Unknown]
  - Gastroenteritis [Recovered/Resolved]
  - Febrile neutropenia [Unknown]
